FAERS Safety Report 11500133 (Version 1)
Quarter: 2015Q3

REPORT INFORMATION
  Report Type: Spontaneous
  Country: US (occurrence: US)
  Receive Date: 20150914
  Receipt Date: 20150914
  Transmission Date: 20151125
  Serious: No
  Sender: FDA-Public Use
  Company Number: US-BAYER-2015-421188

PATIENT
  Age: 57 Year
  Sex: Male

DRUGS (1)
  1. GADAVIST [Suspect]
     Active Substance: GADOBUTROL
     Indication: COMPUTERISED TOMOGRAM PELVIS
     Dosage: 10 ML, ONCE
     Dates: start: 20150908, end: 20150908

REACTIONS (3)
  - Nausea [None]
  - Asthenia [None]
  - Product use issue [None]

NARRATIVE: CASE EVENT DATE: 20150908
